FAERS Safety Report 8569016-8 (Version None)
Quarter: 2012Q3

REPORT INFORMATION
  Report Type: 
  Country: None (occurrence: None)
  Receive Date: 20120803
  Receipt Date: 20120217
  Transmission Date: 20120928
  Serious: No
  Sender: FDA-Public Use
  Company Number: US-ABBOTT-12P-163-0905652-00

PATIENT
  Sex: Male
  Weight: 110.32 kg

DRUGS (1)
  1. NIASPAN [Suspect]
     Indication: LOW DENSITY LIPOPROTEIN INCREASED
     Dates: start: 20110201, end: 20110301

REACTIONS (2)
  - PNEUMONIA [None]
  - PARAESTHESIA [None]
